FAERS Safety Report 10020520 (Version 1)
Quarter: 2014Q1

REPORT INFORMATION
  Report Type: Spontaneous
  Country: US (occurrence: US)
  Receive Date: 20140319
  Receipt Date: 20140319
  Transmission Date: 20141002
  Serious: No
  Sender: FDA-Public Use
  Company Number: US-BIOGENIDEC-2014BI023035

PATIENT
  Age: 55 Year
  Sex: Female
  Weight: 61 kg

DRUGS (7)
  1. TECFIDERA [Suspect]
     Indication: MULTIPLE SCLEROSIS
  2. TECFIDERA [Suspect]
     Indication: MULTIPLE SCLEROSIS
     Route: 048
  3. TECFIDERA [Suspect]
     Indication: MULTIPLE SCLEROSIS
     Dates: start: 20140305
  4. GABAPENTIN [Concomitant]
  5. TEMAZEPAM [Concomitant]
  6. TRAMADOL [Concomitant]
  7. ESTRADIOL [Concomitant]

REACTIONS (3)
  - Prescribed underdose [Not Recovered/Not Resolved]
  - Nausea [Unknown]
  - Vomiting [Unknown]
